FAERS Safety Report 10100464 (Version 2)
Quarter: 2014Q2

REPORT INFORMATION
  Report Type: Report from Study
  Country: CA (occurrence: CA)
  Receive Date: 20140423
  Receipt Date: 20140602
  Transmission Date: 20141212
  Serious: Yes (Disabling, Other)
  Sender: FDA-Public Use
  Company Number: PHHY2014CA049487

PATIENT
  Age: 83 Year
  Sex: Female

DRUGS (6)
  1. ACLASTA [Suspect]
     Indication: OSTEOPOROSIS
     Dosage: 5 MG, ANNUALLY
     Route: 042
     Dates: start: 20120502
  2. ACLASTA [Suspect]
     Dosage: 5 MG, ANNUALLY
     Route: 042
     Dates: start: 20130503
  3. LIPITOR [Concomitant]
     Dosage: UNK UKN, UNK
  4. NORVASC [Concomitant]
     Dosage: 5 MG, QD
  5. NITROGLYCERIN [Concomitant]
     Dosage: UNK UKN, PRN
  6. ASA [Concomitant]
     Dosage: 81 MG, QD

REACTIONS (10)
  - Angle closure glaucoma [Unknown]
  - Blindness unilateral [Not Recovered/Not Resolved]
  - Visual impairment [Unknown]
  - Pain [Unknown]
  - Visual acuity reduced [Unknown]
  - Lens disorder [Unknown]
  - Choroidal haemorrhage [Unknown]
  - Retinal haemorrhage [Unknown]
  - Retinal artery occlusion [Unknown]
  - Blood pressure increased [Unknown]
